FAERS Safety Report 21172449 (Version 1)
Quarter: 2022Q3

REPORT INFORMATION
  Report Type: Spontaneous
  Country: US (occurrence: None)
  Receive Date: 20220803
  Receipt Date: 20220803
  Transmission Date: 20221027
  Serious: No
  Sender: FDA-Public Use
  Company Number: None

PATIENT
  Age: 52 Year
  Sex: Female
  Weight: 108 kg

DRUGS (7)
  1. CITROMA [Suspect]
     Active Substance: MAGNESIUM CITRATE
     Indication: Bowel preparation
     Dosage: OTHER QUANTITY : 1 BOTTLE;?
     Route: 048
     Dates: start: 20020721, end: 20220721
  2. ZOLOFT [Concomitant]
     Active Substance: SERTRALINE HYDROCHLORIDE
  3. PANTOPRAZOLE [Concomitant]
  4. LIPITOR [Concomitant]
     Active Substance: ATORVASTATIN CALCIUM
  5. Bariatric Multivitamin [Concomitant]
  6. Calcium w/probiotics [Concomitant]
  7. VITAMIN B12 [Concomitant]
     Active Substance: CYANOCOBALAMIN

REACTIONS (7)
  - Recalled product administered [None]
  - Abdominal pain upper [None]
  - Dizziness [None]
  - Dizziness [None]
  - Body temperature increased [None]
  - Diarrhoea [None]
  - Hyperhidrosis [None]

NARRATIVE: CASE EVENT DATE: 20220721
